FAERS Safety Report 6137319-2 (Version None)
Quarter: 2009Q1

REPORT INFORMATION
  Report Type: 
  Country: None (occurrence: None)
  Receive Date: 20090330
  Receipt Date: 20090323
  Transmission Date: 20090719
  Serious: Yes (Hospitalization)
  Sender: FDA-Public Use
  Company Number: US-B.I. PHARMACEUTICALS,INC./RIDGEFIELD-2009-BP-03521BP

PATIENT
  Age: 86 Year
  Sex: Male

DRUGS (4)
  1. FLOMAX [Suspect]
     Indication: BENIGN PROSTATIC HYPERPLASIA
     Dosage: .4MG
     Route: 048
     Dates: start: 20040101
  2. WARFARIN SODIUM [Suspect]
  3. LASIX [Concomitant]
  4. MULTI-VITAMIN [Concomitant]

REACTIONS (5)
  - AGITATION [None]
  - FALL [None]
  - HIP FRACTURE [None]
  - INSOMNIA [None]
  - NEUROPATHY PERIPHERAL [None]
